FAERS Safety Report 11428681 (Version 1)
Quarter: 2015Q3

REPORT INFORMATION
  Report Type: Report from Study
  Country: BR (occurrence: BR)
  Receive Date: 20150828
  Receipt Date: 20150828
  Transmission Date: 20151125
  Serious: Yes (Hospitalization, Other)
  Sender: FDA-Public Use
  Company Number: PHHY2015BR100201

PATIENT
  Sex: Female
  Weight: 52 kg

DRUGS (6)
  1. EXELON PATCH [Suspect]
     Active Substance: RIVASTIGMINE
     Indication: DEMENTIA
     Dosage: 4.6 MG, QD (5 CM2 PATCH)
     Route: 062
     Dates: start: 201507
  2. AVALOX [Suspect]
     Active Substance: MOXIFLOXACIN HYDROCHLORIDE
     Indication: PNEUMONIA
     Dosage: 400 MG, UNK
     Route: 065
  3. DIOVAN HCT [Suspect]
     Active Substance: HYDROCHLOROTHIAZIDE\VALSARTAN
     Indication: HYPERTENSION
     Dosage: 1 DF (VALSARTAN 160 MG, HYDROCHLORTHIAZIDE 12.5MG), QD
     Route: 065
  4. RISPERIDONA [Suspect]
     Active Substance: RISPERIDONE
     Indication: MALAISE
     Dosage: 2 DF, QD
     Route: 065
     Dates: start: 201506
  5. QUETIAPINA [Suspect]
     Active Substance: QUETIAPINE
     Indication: INSOMNIA
     Dosage: 1 DF, QD
     Dates: start: 20150626
  6. QUETIAPINA [Suspect]
     Active Substance: QUETIAPINE
     Dosage: 3 DF, QD

REACTIONS (4)
  - Somnolence [Unknown]
  - Pain in extremity [Unknown]
  - Pneumonia [Recovered/Resolved]
  - Delirium [Unknown]
